FAERS Safety Report 7760633-1 (Version None)
Quarter: 2011Q3

REPORT INFORMATION
  Report Type: 
  Country: None (occurrence: None)
  Receive Date: 20110919
  Receipt Date: 20110913
  Transmission Date: 20111222
  Serious: Yes (Other)
  Sender: FDA-Public Use
  Company Number: BR-PFIZER INC-2011217135

PATIENT
  Sex: Female

DRUGS (1)
  1. CELEBREX [Suspect]
     Indication: NAIL DISORDER
     Dosage: UNK
     Route: 048
     Dates: start: 20110901

REACTIONS (2)
  - ERYTHEMA [None]
  - SWELLING FACE [None]
